FAERS Safety Report 22022927 (Version 2)
Quarter: 2023Q2

REPORT INFORMATION
  Report Type: Report from Study
  Country: US (occurrence: US)
  Receive Date: 20230222
  Receipt Date: 20230601
  Transmission Date: 20230721
  Serious: Yes (Hospitalization, Other)
  Sender: FDA-Public Use
  Company Number: US-BIOVITRUM-2023US02443

PATIENT
  Age: 38 Year
  Sex: Female

DRUGS (2)
  1. KINERET [Suspect]
     Active Substance: ANAKINRA
     Indication: Multisystem inflammatory syndrome
     Dosage: EVERY TWO DAYS
     Dates: start: 20220318
  2. KINERET [Suspect]
     Active Substance: ANAKINRA
     Dosage: DAILY
     Dates: start: 20220318

REACTIONS (6)
  - Haemorrhage [Unknown]
  - Vomiting [Unknown]
  - Haemoptysis [Unknown]
  - Intentional product misuse [Recovered/Resolved]
  - Product dose omission issue [Unknown]
  - Lung disorder [Unknown]

NARRATIVE: CASE EVENT DATE: 20220318
